FAERS Safety Report 12813013 (Version 1)
Quarter: 2016Q4

REPORT INFORMATION
  Report Type: Spontaneous
  Country: US (occurrence: US)
  Receive Date: 20161005
  Receipt Date: 20161005
  Transmission Date: 20170207
  Serious: No
  Sender: FDA-Public Use
  Company Number: US-AMGEN-USASP2016012727

PATIENT
  Age: 81 Year
  Sex: Male

DRUGS (3)
  1. CALCIUM [Concomitant]
     Active Substance: CALCIUM
     Dosage: UNK
  2. VITAMIN D3 [Concomitant]
     Active Substance: CHOLECALCIFEROL
     Dosage: UNK
  3. PROLIA [Suspect]
     Active Substance: DENOSUMAB
     Indication: OSTEOPOROSIS
     Dosage: UNK
     Route: 065

REACTIONS (12)
  - Blister [Recovering/Resolving]
  - Heart rate increased [Recovering/Resolving]
  - Nausea [Recovering/Resolving]
  - Balance disorder [Recovering/Resolving]
  - Insomnia [Recovering/Resolving]
  - Dizziness [Recovering/Resolving]
  - Secretion discharge [Recovering/Resolving]
  - Skin fissures [Recovering/Resolving]
  - Rash [Recovering/Resolving]
  - Constipation [Recovering/Resolving]
  - Pruritus [Recovering/Resolving]
  - Eczema [Recovering/Resolving]

NARRATIVE: CASE EVENT DATE: 2015
